FAERS Safety Report 6689885-6 (Version None)
Quarter: 2010Q2

REPORT INFORMATION
  Report Type: 
  Country: None (occurrence: None)
  Receive Date: 20100412
  Receipt Date: 20100201
  Transmission Date: 20101027
  Serious: No
  Sender: FDA-Public Use
  Company Number: 1000011595

PATIENT
  Age: 75 Year
  Sex: Female

DRUGS (8)
  1. BYSTOLIC [Suspect]
     Indication: HYPERTENSION
     Dosage: 2.5 MG (5 MG, 1 IN 2 D), ORAL, 5 MG (5 MG, 1 IN 1 D), ORAL
     Route: 048
     Dates: start: 20090901, end: 20091001
  2. BYSTOLIC [Suspect]
     Indication: HYPERTENSION
     Dosage: 2.5 MG (5 MG, 1 IN 2 D), ORAL, 5 MG (5 MG, 1 IN 1 D), ORAL
     Route: 048
     Dates: start: 20091001
  3. TEKTURNA [Concomitant]
  4. LIPITOR [Concomitant]
  5. CATAPRES [Concomitant]
  6. ATIVAN [Concomitant]
  7. ALEVE (CAPLET) [Concomitant]
  8. PRILOSEC [Concomitant]

REACTIONS (2)
  - ALOPECIA [None]
  - PRURITUS [None]
